FAERS Safety Report 10446596 (Version 1)
Quarter: 2014Q3

REPORT INFORMATION
  Report Type: Spontaneous
  Country: US (occurrence: None)
  Receive Date: 20140910
  Receipt Date: 20140910
  Transmission Date: 20150326
  Serious: Yes (Hospitalization)
  Sender: FDA-Public Use
  Company Number: None

PATIENT
  Age: 52 Year
  Sex: Male
  Weight: 112.49 kg

DRUGS (1)
  1. BENICAR [Suspect]
     Active Substance: OLMESARTAN MEDOXOMIL
     Indication: BLOOD PRESSURE
     Dosage: 1/2 TABLET ONCE DAILY TAKEN BY MOUTH
     Route: 048
     Dates: start: 20140725, end: 20140816

REACTIONS (4)
  - Muscular weakness [None]
  - Tongue disorder [None]
  - Tongue haemorrhage [None]
  - Dizziness [None]

NARRATIVE: CASE EVENT DATE: 20140817
